FAERS Safety Report 24625596 (Version 1)
Quarter: 2024Q4

REPORT INFORMATION
  Report Type: Spontaneous
  Country: US (occurrence: US)
  Receive Date: 20241115
  Receipt Date: 20241115
  Transmission Date: 20250114
  Serious: No
  Sender: NOVARTIS
  Company Number: US-002147023-NVSC2024US220449

PATIENT
  Sex: Male
  Weight: 154 kg

DRUGS (1)
  1. LEQVIO [Suspect]
     Active Substance: INCLISIRAN SODIUM
     Indication: Hyperlipidaemia
     Dosage: 284 MG, (1.5 ML, OTHER), (ADMINISTERED INITIALLY, AGAIN AT 3 MONTHS, AND THEN EVERY 6 MONTHS)
     Route: 058
     Dates: start: 2023, end: 2024

REACTIONS (2)
  - Drug ineffective [Not Recovered/Not Resolved]
  - Obesity [Not Recovered/Not Resolved]
